FAERS Safety Report 6719385-6 (Version None)
Quarter: 2010Q2

REPORT INFORMATION
  Report Type: 
  Country: None (occurrence: None)
  Receive Date: 20100511
  Receipt Date: 20100430
  Transmission Date: 20101027
  Serious: Yes (Hospitalization)
  Sender: FDA-Public Use
  Company Number: US-BRISTOL-MYERS SQUIBB COMPANY-15097561

PATIENT
  Age: 70 Year
  Sex: Female

DRUGS (18)
  1. CETUXIMAB [Suspect]
     Indication: NON-SMALL CELL LUNG CANCER
     Route: 042
     Dates: start: 20100408
  2. PACLITAXEL [Suspect]
     Indication: NON-SMALL CELL LUNG CANCER
     Route: 042
     Dates: start: 20100408
  3. CARBOPLATIN [Suspect]
     Indication: NON-SMALL CELL LUNG CANCER
     Route: 042
     Dates: start: 20100408
  4. BENZONATATE [Concomitant]
  5. CIPROFLOXACIN [Concomitant]
  6. LEVOFLOXACIN [Concomitant]
     Dosage: DOSAGE:DAILY FOR 5 DAYS.
     Dates: start: 20100423
  7. SYNTHROID [Concomitant]
  8. LEVOTHYROXINE SODIUM [Concomitant]
  9. CITALOPRAM [Concomitant]
     Route: 065
  10. COLACE [Concomitant]
     Route: 065
  11. AMITRIPTYLINE HCL [Concomitant]
     Route: 065
  12. SPIRIVA [Concomitant]
     Route: 065
  13. CALCIUM [Concomitant]
     Indication: SUPPLEMENTATION THERAPY
     Route: 065
  14. IRON [Concomitant]
     Indication: SUPPLEMENTATION THERAPY
     Route: 065
  15. DUONEB [Concomitant]
     Route: 065
  16. MULTI-VITAMINS [Concomitant]
     Indication: SUPPLEMENTATION THERAPY
     Route: 065
  17. OXYGEN [Concomitant]
     Indication: CHRONIC OBSTRUCTIVE PULMONARY DISEASE
     Route: 065
  18. ADVAIR DISKUS 100/50 [Concomitant]
     Route: 065

REACTIONS (1)
  - RENAL FAILURE ACUTE [None]
